FAERS Safety Report 16834433 (Version 1)
Quarter: 2019Q3

REPORT INFORMATION
  Report Type: Spontaneous
  Country: US (occurrence: US)
  Receive Date: 20190920
  Receipt Date: 20190920
  Transmission Date: 20191005
  Serious: Yes (Other)
  Sender: FDA-Public Use
  Company Number: PHHY2019US213065

PATIENT
  Age: 18 Year
  Sex: Male

DRUGS (3)
  1. VEMURAFENIB. [Suspect]
     Active Substance: VEMURAFENIB
     Indication: ANAPLASTIC ASTROCYTOMA
     Dosage: UNK UNK, CYCLIC
     Route: 065
  2. TEMOZOLOMIDE. [Suspect]
     Active Substance: TEMOZOLOMIDE
     Indication: ANAPLASTIC ASTROCYTOMA
     Dosage: UNK
     Route: 065
  3. TRAMETINIB [Suspect]
     Active Substance: TRAMETINIB
     Indication: ANAPLASTIC ASTROCYTOMA
     Dosage: UNK UNK, CYCLIC
     Route: 065

REACTIONS (3)
  - Disease recurrence [Unknown]
  - Anaplastic astrocytoma [Unknown]
  - Fat necrosis [Unknown]
